FAERS Safety Report 4375480-0 (Version None)
Quarter: 2004Q2

REPORT INFORMATION
  Report Type: 
  Country: None (occurrence: None)
  Receive Date: 20040607
  Receipt Date: 20040521
  Transmission Date: 20050107
  Serious: Yes (Hospitalization)
  Sender: FDA-Public Use
  Company Number: 205130

PATIENT
  Age: 56 Year
  Sex: Female
  Weight: 88 kg

DRUGS (10)
  1. HERCEPTIN [Suspect]
     Indication: BREAST CANCER METASTATIC
     Dosage: 352 MG, SINGLE; INTRAVENOUS (SEE IMAGE)
     Route: 042
     Dates: start: 20031215, end: 20031215
  2. HERCEPTIN [Suspect]
     Indication: BREAST CANCER METASTATIC
     Dosage: 352 MG, SINGLE; INTRAVENOUS (SEE IMAGE)
     Route: 042
     Dates: start: 20031222
  3. DOCETAXEL (DOCETAXEL) [Suspect]
     Indication: BREAST CANCER METASTATIC
     Dosage: 188 MG, Q3W, INTRAVENOUS
     Route: 042
     Dates: start: 20031216
  4. SYNTHROID [Concomitant]
  5. MULTIVITAMIN (MULTIVITAMINS NOS) [Concomitant]
  6. DEXAMETHASONE [Concomitant]
  7. ACETAMINOPHEN [Concomitant]
  8. DOLASETRON (DOLASETRON MESYLATE) [Concomitant]
  9. HYDROCHLOROTHIAZIDE [Concomitant]
  10. TRIAMTERENE [Concomitant]

REACTIONS (5)
  - DEHYDRATION [None]
  - NEUTROPENIA [None]
  - PYREXIA [None]
  - SYNCOPE [None]
  - WHITE BLOOD CELL COUNT DECREASED [None]
